FAERS Safety Report 10244492 (Version 1)
Quarter: 2014Q2

REPORT INFORMATION
  Report Type: Report from Study
  Country: CA (occurrence: CA)
  Receive Date: 20140618
  Receipt Date: 20140618
  Transmission Date: 20141212
  Serious: Yes (Hospitalization)
  Sender: FDA-Public Use
  Company Number: CA-GLAXOSMITHKLINE-A0969179A

PATIENT
  Age: 54 Year
  Sex: Female
  Weight: 96 kg

DRUGS (2)
  1. BENLYSTA [Suspect]
     Indication: SYSTEMIC LUPUS ERYTHEMATOSUS
     Dosage: 960MG SEE DOSAGE TEXT
     Route: 042
     Dates: start: 20120214
  2. ASA [Concomitant]

REACTIONS (7)
  - Fatigue [Recovered/Resolved]
  - Fatigue [Unknown]
  - Chest pain [Recovered/Resolved]
  - Abdominal pain [Recovered/Resolved]
  - Nausea [Recovered/Resolved]
  - Chills [Recovered/Resolved]
  - Arthrodesis [Recovering/Resolving]
